FAERS Safety Report 5243249-0 (Version None)
Quarter: 2007Q1

REPORT INFORMATION
  Report Type: 
  Country: None (occurrence: None)
  Receive Date: 20070221
  Receipt Date: 20070209
  Transmission Date: 20070707
  Serious: Yes (Hospitalization, Other)
  Sender: FDA-Public Use
  Company Number: JP-PFIZER INC-2007006037

PATIENT
  Sex: Male
  Weight: 44 kg

DRUGS (4)
  1. SULPERAZON [Suspect]
     Indication: BILIARY DRAINAGE
     Route: 042
     Dates: start: 20061227, end: 20061227
  2. SULPERAZON [Suspect]
     Indication: PROPHYLAXIS
  3. CEFOBID IV [Suspect]
     Indication: ENDOSCOPIC RETROGRADE CHOLANGIOPANCREATOGRAPHY
     Route: 042
     Dates: start: 20070111, end: 20070111
  4. CEFOBID IV [Suspect]
     Indication: CHOLECYSTOCHOLANGITIS

REACTIONS (1)
  - ANAPHYLACTIC REACTION [None]
